FAERS Safety Report 8011164-5 (Version None)
Quarter: 2011Q4

REPORT INFORMATION
  Report Type: 
  Country: None (occurrence: None)
  Receive Date: 20111228
  Receipt Date: 20111220
  Transmission Date: 20120403
  Serious: Yes (Disabling, Other)
  Sender: FDA-Public Use
  Company Number: US-ROCHE-784283

PATIENT
  Sex: Female
  Weight: 54.48 kg

DRUGS (4)
  1. ACCUTANE [Suspect]
     Indication: ACNE
     Route: 065
     Dates: start: 19890101, end: 19890101
  2. ORTHO EVRA [Concomitant]
  3. TRIVORA-21 [Concomitant]
  4. ORTHO CYCLEN-28 [Concomitant]

REACTIONS (6)
  - EMOTIONAL DISTRESS [None]
  - DEPRESSION [None]
  - INFLAMMATORY BOWEL DISEASE [None]
  - COLITIS ULCERATIVE [None]
  - IRRITABLE BOWEL SYNDROME [None]
  - PANIC ATTACK [None]
